FAERS Safety Report 5405809-3 (Version None)
Quarter: 2007Q3

REPORT INFORMATION
  Report Type: 
  Country: None (occurrence: None)
  Receive Date: 20070806
  Receipt Date: 20070730
  Transmission Date: 20080115
  Serious: Yes (Hospitalization)
  Sender: FDA-Public Use
  Company Number: US-BAYER-200712327BCC

PATIENT
  Age: 32 Year
  Sex: Female
  Weight: 59 kg

DRUGS (3)
  1. RID LICE KILLING SHAMPOO [Suspect]
     Indication: LICE INFESTATION
     Route: 061
     Dates: start: 20070715
  2. RID LICE KILLING SHAMPOO [Suspect]
     Route: 061
     Dates: start: 20070718
  3. PAXIL [Concomitant]

REACTIONS (3)
  - MIGRAINE [None]
  - MUSCLE TWITCHING [None]
  - MYDRIASIS [None]
